FAERS Safety Report 21160882 (Version 1)
Quarter: 2022Q3

REPORT INFORMATION
  Report Type: Report from Study
  Country: PR (occurrence: PR)
  Receive Date: 20220802
  Receipt Date: 20220802
  Transmission Date: 20221026
  Serious: Yes (Other)
  Sender: FDA-Public Use
  Company Number: PR-SEBELA IRELAND LIMITED-2022SEB00047

PATIENT
  Age: 14 Year
  Sex: Male
  Weight: 35 kg

DRUGS (10)
  1. IMURAN [Suspect]
     Active Substance: AZATHIOPRINE
     Indication: Crohn^s disease
     Dosage: 50 MG, 1X/WEEK ON TUESDAYS
     Route: 048
     Dates: start: 2018, end: 202108
  2. IMURAN [Suspect]
     Active Substance: AZATHIOPRINE
     Dosage: 25 MG, DAILY ALL OTHER DAYS
     Route: 048
     Dates: start: 2018, end: 202108
  3. HUMIRA [Suspect]
     Active Substance: ADALIMUMAB
     Indication: Crohn^s disease
     Dosage: 80 MG, 1X/DAY
     Route: 058
     Dates: start: 202108, end: 202108
  4. HUMIRA [Suspect]
     Active Substance: ADALIMUMAB
     Dosage: 40 MG, 2X/MONTH (1 IN 2 WK)
     Route: 058
     Dates: start: 202108
  5. PFIZER-BIONTECH COVID-19 VACCINE [Concomitant]
     Active Substance: TOZINAMERAN
     Dosage: 1 DOSAGE UNITS, ONCE
     Route: 030
     Dates: start: 20210523, end: 20210523
  6. PFIZER-BIONTECH COVID-19 VACCINE [Concomitant]
     Active Substance: TOZINAMERAN
     Dosage: 1 DOSAGE UNITS, ONCE
     Route: 030
     Dates: start: 20210613, end: 20210613
  7. PFIZER-BIONTECH COVID-19 VACCINE [Concomitant]
     Active Substance: TOZINAMERAN
     Dosage: 1 DOSAGE UNITS, ONCE
     Route: 030
     Dates: start: 20211227, end: 20211227
  8. VITAMIN D [Concomitant]
     Active Substance: VITAMIN D NOS
     Dosage: 10000 IU, 1X/WEEK
     Route: 048
     Dates: start: 2017
  9. LEVOCARNITINE [Concomitant]
     Active Substance: LEVOCARNITINE
     Dosage: 1000 MG, 1X/DAY
     Route: 048
     Dates: start: 2017
  10. CALCIUM [Concomitant]
     Active Substance: CALCIUM
     Dosage: 750 MG, 2X/DAY
     Route: 048
     Dates: start: 2021

REACTIONS (4)
  - Axial spondyloarthritis [Recovered/Resolved]
  - Osteoporosis [Recovered/Resolved]
  - Overdose [Recovered/Resolved]
  - Off label use [Recovered/Resolved]

NARRATIVE: CASE EVENT DATE: 20180101
